FAERS Safety Report 4363672-6 (Version None)
Quarter: 2004Q2

REPORT INFORMATION
  Report Type: 
  Country: None (occurrence: None)
  Receive Date: 20040524
  Receipt Date: 20040524
  Transmission Date: 20050107
  Serious: Yes (Life-Threatening, Hospitalization)
  Sender: FDA-Public Use
  Company Number: None

PATIENT
  Age: 85 Year
  Sex: Male
  Weight: 87 kg

DRUGS (7)
  1. LEVAQUIN [Suspect]
     Indication: PNEUMONIA
     Dosage: 500 MG QD INTRAVENOUS
     Route: 042
     Dates: start: 20030313, end: 20030313
  2. LEVAQUIN [Suspect]
     Indication: URINARY TRACT INFECTION
     Dosage: 500 MG QD INTRAVENOUS
     Route: 042
     Dates: start: 20030313, end: 20030313
  3. ASPIRIN [Concomitant]
  4. IDNERAL LA [Concomitant]
  5. FLOMAX [Concomitant]
  6. MAXZIDE [Concomitant]
  7. ELDEPRYL [Concomitant]

REACTIONS (6)
  - CONFUSIONAL STATE [None]
  - DYSPNOEA [None]
  - HYPOTENSION [None]
  - PRURITUS [None]
  - SKIN DISCOLOURATION [None]
  - URTICARIA [None]
